FAERS Safety Report 11313055 (Version 1)
Quarter: 2015Q3

REPORT INFORMATION
  Report Type: Spontaneous
  Country: US (occurrence: US)
  Receive Date: 20150727
  Receipt Date: 20150727
  Transmission Date: 20151125
  Serious: No
  Sender: FDA-Public Use
  Company Number: US-ABBVIE-15P-163-1375164-00

PATIENT
  Sex: Female

DRUGS (2)
  1. PROZAC [Suspect]
     Active Substance: FLUOXETINE HYDROCHLORIDE
     Indication: PRODUCT USED FOR UNKNOWN INDICATION
     Route: 065
  2. SYNTHROID [Suspect]
     Active Substance: LEVOTHYROXINE SODIUM
     Indication: PRODUCT USED FOR UNKNOWN INDICATION
     Route: 065

REACTIONS (15)
  - Grip strength decreased [Unknown]
  - Infertility [Unknown]
  - Muscular weakness [Unknown]
  - Hypertension [Unknown]
  - Carpal tunnel syndrome [Unknown]
  - Dysstasia [Unknown]
  - Uterine leiomyoma [Unknown]
  - Alopecia [Unknown]
  - Malaise [Unknown]
  - Dysplasia [Unknown]
  - Feeling abnormal [Unknown]
  - Dysphemia [Unknown]
  - Insomnia [Unknown]
  - Plantar fasciitis [Unknown]
  - Obesity [Unknown]
